FAERS Safety Report 17842143 (Version 1)
Quarter: 2020Q2

REPORT INFORMATION
  Report Type: Spontaneous
  Country: GB (occurrence: GB)
  Receive Date: 20200529
  Receipt Date: 20200529
  Transmission Date: 20200714
  Serious: Yes (Life-Threatening, Hospitalization)
  Sender: FDA-Public Use
  Company Number: GB-ELI_LILLY_AND_COMPANY-GB202005010176

PATIENT
  Age: 37 Year
  Sex: Male

DRUGS (4)
  1. OLANZAPINE PAMOATE [Suspect]
     Active Substance: OLANZAPINE PAMOATE
     Indication: BIPOLAR DISORDER
     Dosage: 405 MG, UNKNOWN
     Route: 030
  2. OLANZAPINE PAMOATE [Suspect]
     Active Substance: OLANZAPINE PAMOATE
     Indication: BIPOLAR DISORDER
     Dosage: 405 MG, UNKNOWN
     Route: 030
  3. OLANZAPINE PAMOATE [Suspect]
     Active Substance: OLANZAPINE PAMOATE
     Indication: BIPOLAR DISORDER
     Dosage: 405 MG, UNKNOWN
     Route: 030
  4. VALPROIC ACID. [Concomitant]
     Active Substance: VALPROIC ACID
     Indication: PRODUCT USED FOR UNKNOWN INDICATION
     Dosage: UNK, UNKNOWN
     Route: 065

REACTIONS (7)
  - Respiration abnormal [Unknown]
  - Confusional state [Unknown]
  - Dizziness [Unknown]
  - Coordination abnormal [Unknown]
  - Tension [Unknown]
  - Post procedural complication [Recovering/Resolving]
  - Gait disturbance [Unknown]

NARRATIVE: CASE EVENT DATE: 20200512
